FAERS Safety Report 7962855-3 (Version None)
Quarter: 2011Q4

REPORT INFORMATION
  Report Type: 
  Country: None (occurrence: None)
  Receive Date: 20111207
  Receipt Date: 20111130
  Transmission Date: 20120403
  Serious: Yes (Other)
  Sender: FDA-Public Use
  Company Number: US-ALLERGAN-1115602US

PATIENT
  Sex: Female

DRUGS (1)
  1. BOTULINUM TOXIN TYPE A [Suspect]
     Indication: MUSCLE SPASTICITY
     Dosage: 400 UNITS, SINGLE
     Route: 030
     Dates: start: 20100517, end: 20100517

REACTIONS (8)
  - NAUSEA [None]
  - DYSPHONIA [None]
  - BLADDER DISORDER [None]
  - FATIGUE [None]
  - LETHARGY [None]
  - SOMNOLENCE [None]
  - ASTHENIA [None]
  - BOTULISM [None]
